FAERS Safety Report 5726742-3 (Version None)
Quarter: 2008Q2

REPORT INFORMATION
  Report Type: 
  Country: None (occurrence: None)
  Receive Date: 20080502
  Receipt Date: 20080428
  Transmission Date: 20081010
  Serious: Yes (Hospitalization, Other)
  Sender: FDA-Public Use
  Company Number: GB-ABBOTT-08P-167-0449316-00

PATIENT
  Sex: Female

DRUGS (3)
  1. VALPROATE SODIUM [Suspect]
     Indication: GRAND MAL CONVULSION
  2. VALPROATE SODIUM [Suspect]
  3. FOLIC ACID [Concomitant]
     Indication: PROPHYLAXIS

REACTIONS (7)
  - BACK PAIN [None]
  - BLOOD SODIUM DECREASED [None]
  - BLOOD URINE PRESENT [None]
  - NAUSEA [None]
  - OEDEMA [None]
  - PRE-ECLAMPSIA [None]
  - PROTEIN URINE PRESENT [None]
